FAERS Safety Report 13760139 (Version 1)
Quarter: 2017Q3

REPORT INFORMATION
  Report Type: Spontaneous
  Country: US (occurrence: US)
  Receive Date: 20170717
  Receipt Date: 20170717
  Transmission Date: 20171127
  Serious: No
  Sender: FDA-Public Use
  Company Number: US-AMGEN-USASP2017099973

PATIENT
  Age: 43 Year
  Sex: Female

DRUGS (5)
  1. LACTATED RINGERS [Concomitant]
     Active Substance: CALCIUM CHLORIDE\POTASSIUM CHLORIDE\SODIUM CHLORIDE\SODIUM LACTATE
     Indication: BLOOD PRESSURE DECREASED
     Dosage: UNK UNK, 2 TIMES/WK
  2. LASIX [Concomitant]
     Active Substance: FUROSEMIDE
     Dosage: UNK
  3. CORLANOR [Suspect]
     Active Substance: IVABRADINE HYDROCHLORIDE
     Indication: BLOOD PRESSURE DECREASED
  4. CORLANOR [Suspect]
     Active Substance: IVABRADINE HYDROCHLORIDE
     Indication: POSTURAL ORTHOSTATIC TACHYCARDIA SYNDROME
     Dosage: 5 MG, (WHOLE IN MORNING AND HALF IN THE EVENING)
     Route: 065
     Dates: start: 2015
  5. CORLANOR [Suspect]
     Active Substance: IVABRADINE HYDROCHLORIDE
     Indication: AUTONOMIC NERVOUS SYSTEM IMBALANCE
     Dosage: UNK 1 IN THE MORNING
     Route: 065

REACTIONS (6)
  - Feeling abnormal [Unknown]
  - Intentional product misuse [Unknown]
  - Cardiac disorder [Unknown]
  - Off label use [Unknown]
  - Temperature regulation disorder [Recovered/Resolved]
  - Nervous system disorder [Unknown]
